FAERS Safety Report 10179110 (Version 1)
Quarter: 2014Q2

REPORT INFORMATION
  Report Type: Spontaneous
  Country: US (occurrence: None)
  Receive Date: 20140515
  Receipt Date: 20140515
  Transmission Date: 20141212
  Serious: Yes (Hospitalization, Other)
  Sender: FDA-Public Use
  Company Number: 2014P1003793

PATIENT
  Age: 37 Year
  Sex: Female
  Weight: 56.7 kg

DRUGS (1)
  1. ANALPRAM E [Suspect]
     Indication: HAEMORRHOIDS
     Route: 054
     Dates: start: 20091113, end: 20091113

REACTIONS (23)
  - Anorectal discomfort [None]
  - Hypotonia [None]
  - Faeces hard [None]
  - Dry skin [None]
  - Burning sensation [None]
  - Dyspnoea [None]
  - Viral infection [None]
  - Rash [None]
  - Erythema [None]
  - Acne [None]
  - Blister [None]
  - Alopecia [None]
  - Body temperature increased [None]
  - Head discomfort [None]
  - Exophthalmos [None]
  - Visual field defect [None]
  - Hyperhidrosis [None]
  - Tremor [None]
  - Weight decreased [None]
  - Malaise [None]
  - Infection [None]
  - Temperature intolerance [None]
  - Anal sphincter atony [None]
